FAERS Safety Report 6615723-3 (Version None)
Quarter: 2010Q1

REPORT INFORMATION
  Report Type: 
  Country: None (occurrence: None)
  Receive Date: 20100305
  Receipt Date: 20100304
  Transmission Date: 20100710
  Serious: Yes (Hospitalization)
  Sender: FDA-Public Use
  Company Number: DE-EISAI INC.-E2020-05949-SPO-DE

PATIENT
  Sex: Male
  Weight: 78 kg

DRUGS (9)
  1. ARICEPT [Suspect]
     Indication: DRUG USE FOR UNKNOWN INDICATION
     Route: 048
     Dates: start: 20100129
  2. ASPIRIN [Concomitant]
     Dosage: 100 MG
  3. TORSEMIDE [Concomitant]
     Dosage: 5 MG
  4. DELIX [Concomitant]
     Dosage: 5 MG
  5. PLAVIX [Concomitant]
     Dosage: 75 MG
  6. BELOC ZOK [Concomitant]
  7. PENTAERYTHRITOL TETRANITRATE [Concomitant]
     Dosage: 150 MG
  8. FLUTAMID [Concomitant]
     Dosage: 500 MG
  9. FERROSANOL [Concomitant]
     Dosage: 200 MG

REACTIONS (1)
  - HYPERTENSIVE CRISIS [None]
